FAERS Safety Report 13381756 (Version 1)
Quarter: 2017Q1

REPORT INFORMATION
  Report Type: Spontaneous
  Country: US (occurrence: US)
  Receive Date: 20170329
  Receipt Date: 20170329
  Transmission Date: 20170429
  Serious: Yes (Other)
  Sender: FDA-Public Use
  Company Number: None

PATIENT
  Age: 22 Year
  Sex: Female
  Weight: 65.25 kg

DRUGS (2)
  1. BLISOVI FE 1/20 [Concomitant]
     Active Substance: ETHINYL ESTRADIOL\NORETHINDRONE ACETATE
  2. PAROXETINE EXTENDED-RELEASE [Suspect]
     Active Substance: PAROXETINE
     Indication: ANXIETY
     Dosage: ?          QUANTITY:1 TABLET(S);?
     Route: 048

REACTIONS (3)
  - Withdrawal syndrome [None]
  - Malaise [None]
  - Impaired driving ability [None]

NARRATIVE: CASE EVENT DATE: 20160422
